FAERS Safety Report 9517813 (Version 1)
Quarter: 2013Q3

REPORT INFORMATION
  Report Type: Spontaneous
  Country: US (occurrence: None)
  Receive Date: 20130910
  Receipt Date: 20130910
  Transmission Date: 20140515
  Serious: No
  Sender: FDA-Public Use
  Company Number: None

PATIENT
  Age: 78 Year
  Sex: Female
  Weight: 51.71 kg

DRUGS (4)
  1. NITROFURANTOIN [Suspect]
     Indication: CYSTITIS
     Dosage: 100 MG. CAP 1 PILLS/ TWICE DAILY BY MOUTH
     Route: 048
     Dates: start: 20130827, end: 20130828
  2. CANDESARTAN [Concomitant]
  3. CONCOVITE [Concomitant]
  4. PRESERVISION LUTEIN [Concomitant]

REACTIONS (5)
  - Pyrexia [None]
  - Headache [None]
  - Malaise [None]
  - Asthenia [None]
  - Poisoning [None]
